FAERS Safety Report 15455618 (Version 1)
Quarter: 2018Q3

REPORT INFORMATION
  Report Type: Spontaneous
  Country: US (occurrence: US)
  Receive Date: 20180927
  Receipt Date: 20180927
  Transmission Date: 20181010
  Serious: No
  Sender: FDA-Public Use
  Company Number: None

PATIENT
  Age: 74 Year

DRUGS (3)
  1. MYCOPHENOLATE MOF CAP [Concomitant]
     Active Substance: MYCOPHENOLATE MOFETIL
  2. TACROLIMUS CAP 1MG [Suspect]
     Active Substance: TACROLIMUS
     Route: 048
     Dates: start: 20160825
  3. PROCRIT [Suspect]
     Active Substance: ERYTHROPOIETIN

REACTIONS (2)
  - Anaemia [None]
  - Alopecia [None]

NARRATIVE: CASE EVENT DATE: 20180926
